FAERS Safety Report 12310115 (Version 1)
Quarter: 2016Q2

REPORT INFORMATION
  Report Type: Other
  Country: DE (occurrence: DE)
  Receive Date: 20160427
  Receipt Date: 20160427
  Transmission Date: 20160815
  Serious: Yes (Death)
  Sender: FDA-Public Use
  Company Number: DE-APOTEX-2016AP008038

PATIENT
  Age: 75 Year
  Sex: Female

DRUGS (5)
  1. CIPROFLOXACIN                      /00697202/ [Suspect]
     Active Substance: CIPROFLOXACIN HYDROCHLORIDE
     Indication: URINARY TRACT INFECTION
     Dosage: 250 MG, BID
     Route: 048
     Dates: start: 20160219
  2. TRANSTEC PRO [Concomitant]
     Active Substance: BUPRENORPHINE
     Indication: MUSCULOSKELETAL DISORDER
     Dosage: 1 PATCH, WE 35UG/H
     Route: 062
     Dates: start: 201410
  3. PAXIL [Suspect]
     Active Substance: PAROXETINE HYDROCHLORIDE
     Indication: DEPRESSION
     Dosage: 10 MG, U
     Route: 048
     Dates: start: 20160211
  4. PAXIL [Suspect]
     Active Substance: PAROXETINE HYDROCHLORIDE
     Indication: ANXIETY
  5. OXAZEPAM A [Suspect]
     Active Substance: OXAZEPAM
     Indication: RESTLESSNESS
     Dosage: UNK
     Route: 048
     Dates: start: 20160211

REACTIONS (1)
  - Completed suicide [Fatal]

NARRATIVE: CASE EVENT DATE: 20160224
